FAERS Safety Report 24239008 (Version 1)
Quarter: 2024Q3

REPORT INFORMATION
  Report Type: Spontaneous
  Country: US (occurrence: US)
  Receive Date: 20240822
  Receipt Date: 20240822
  Transmission Date: 20241016
  Serious: No
  Sender: TEIKOKU
  Company Number: US-Teikoku Pharma USA-TPU2020-00065

PATIENT
  Age: 91 Year
  Sex: Female
  Weight: 71.67 kg

DRUGS (2)
  1. LIDODERM [Suspect]
     Active Substance: LIDOCAINE
     Indication: Post herpetic neuralgia
  2. LIDODERM [Suspect]
     Active Substance: LIDOCAINE
     Dosage: APPLY ONE PATCH TO AREA EVERY 12 HOURS ON AND OFF FOR 12 HOURS
     Route: 061

REACTIONS (6)
  - Nasopharyngitis [Unknown]
  - Dizziness [Unknown]
  - Paraesthesia oral [Unknown]
  - Product dose omission issue [Unknown]
  - Shoulder operation [Recovered/Resolved]
  - Hypoaesthesia oral [Unknown]

NARRATIVE: CASE EVENT DATE: 20200130
